FAERS Safety Report 26179619 (Version 1)
Quarter: 2025Q4

REPORT INFORMATION
  Report Type: Report from Study
  Country: BR (occurrence: BR)
  Receive Date: 20251219
  Receipt Date: 20251219
  Transmission Date: 20260118
  Serious: Yes (Other)
  Sender: TAKEDA
  Company Number: BR-TAKEDA-2025TUS114138

PATIENT
  Age: 67 Year
  Sex: Female

DRUGS (1)
  1. HUMAN IMMUNOGLOBULIN G\HYALURONIDASE RECOMBINANT HUMAN [Suspect]
     Active Substance: HUMAN IMMUNOGLOBULIN G\HYALURONIDASE (HUMAN RECOMBINANT)
     Indication: Primary immunodeficiency syndrome
     Dosage: UNK UNK, Q4WEEKS
     Dates: start: 202509

REACTIONS (2)
  - Drug-induced liver injury [Unknown]
  - Lipids abnormal [Unknown]
